FAERS Safety Report 6111422-5 (Version None)
Quarter: 2009Q1

REPORT INFORMATION
  Report Type: 
  Country: None (occurrence: None)
  Receive Date: 20090309
  Receipt Date: 20090227
  Transmission Date: 20090719
  Serious: Yes (Life-Threatening, Other)
  Sender: FDA-Public Use
  Company Number: ADE2009-0446

PATIENT
  Age: 16 Year
  Sex: Male

DRUGS (5)
  1. FLUOXETINE HYDROCHLORIDE [Suspect]
     Indication: DEPRESSION
     Dosage: 20 MG - QD - ORAL
     Route: 048
     Dates: start: 20071116, end: 20080201
  2. CITALOPRAM HYDROBROMIDE [Concomitant]
  3. CANNABIS [Concomitant]
  4. ERYTHROMYCIN [Concomitant]
  5. ISOTRETINOIN [Concomitant]

REACTIONS (10)
  - AGGRESSION [None]
  - DEREALISATION [None]
  - DISINHIBITION [None]
  - DISSOCIATION [None]
  - DREAMY STATE [None]
  - FEELING ABNORMAL [None]
  - HALLUCINATION, AUDITORY [None]
  - HOMICIDE [None]
  - INCORRECT DOSE ADMINISTERED [None]
  - TREATMENT NONCOMPLIANCE [None]
